FAERS Safety Report 5775827-4 (Version None)
Quarter: 2008Q2

REPORT INFORMATION
  Report Type: 
  Country: None (occurrence: None)
  Receive Date: 20080617
  Receipt Date: 20080605
  Transmission Date: 20081010
  Serious: Yes (Other)
  Sender: FDA-Public Use
  Company Number: JP-PFIZER INC-2008045494

PATIENT
  Sex: Female

DRUGS (20)
  1. XALATAN [Suspect]
     Indication: GLAUCOMA
     Dosage: TEXT:SEVERAL DROPS ONCE DAILY
     Route: 047
  2. ZOLOFT [Suspect]
     Indication: DEPRESSION
     Dosage: DAILY DOSE:25MG
     Route: 048
  3. TETRAMIDE [Suspect]
     Indication: INSOMNIA
     Route: 048
  4. TETRAMIDE [Suspect]
     Indication: DEPRESSION
  5. LOXONIN [Suspect]
     Indication: BACK PAIN
     Dosage: DAILY DOSE:60MG
     Route: 048
  6. TEPRENONE [Suspect]
     Indication: PROPHYLAXIS AGAINST GASTROINTESTINAL ULCER
     Route: 048
  7. TEPRENONE [Suspect]
  8. TRUSOPT [Concomitant]
     Route: 047
  9. MIKELAN [Concomitant]
     Route: 047
  10. HYALEIN [Concomitant]
     Route: 047
  11. DAONIL [Concomitant]
     Indication: DIABETES MELLITUS
     Route: 048
  12. DIART [Concomitant]
     Indication: DIABETES MELLITUS
     Route: 048
  13. AROFUTO [Concomitant]
     Route: 048
  14. GLYSENNID [Concomitant]
     Route: 048
  15. FRANDOL [Concomitant]
     Indication: ANGINA PECTORIS
     Route: 062
  16. ALFACALCIDOL [Concomitant]
     Route: 048
  17. BROTIZOLAM [Concomitant]
     Indication: INSOMNIA
     Dosage: DAILY DOSE:.25MG
     Route: 048
  18. DEPAS [Concomitant]
     Indication: DEPRESSION
     Dosage: DAILY DOSE:.5MG
     Route: 048
  19. ALLORINE [Concomitant]
     Indication: HYPERURICAEMIA
     Route: 048
  20. NITROPEN [Concomitant]
     Indication: ANGINA PECTORIS
     Route: 048

REACTIONS (8)
  - CEREBRAL ATROPHY [None]
  - DEPRESSION [None]
  - HALLUCINATION, AUDITORY [None]
  - HALLUCINATION, VISUAL [None]
  - HEADACHE [None]
  - INCORRECT DOSE ADMINISTERED [None]
  - INSOMNIA [None]
  - RETINAL HAEMORRHAGE [None]
